FAERS Safety Report 7930262-5 (Version None)
Quarter: 2011Q4

REPORT INFORMATION
  Report Type: 
  Country: None (occurrence: None)
  Receive Date: 20111121
  Receipt Date: 20110818
  Transmission Date: 20120403
  Serious: No
  Sender: FDA-Public Use
  Company Number: US-BAYER-2011-090405

PATIENT
  Sex: Female

DRUGS (2)
  1. IBUPROFEN (ADVIL) [Suspect]
  2. ALEVE (CAPLET) [Suspect]
     Indication: PYREXIA

REACTIONS (2)
  - NO ADVERSE EVENT [None]
  - MIGRAINE [None]
